FAERS Safety Report 5457286-4 (Version None)
Quarter: 2007Q3

REPORT INFORMATION
  Report Type: 
  Country: None (occurrence: None)
  Receive Date: 20070918
  Receipt Date: 20070228
  Transmission Date: 20080115
  Serious: Yes (Other)
  Sender: FDA-Public Use
  Company Number: US-ASTRAZENECA-2007UW02433

PATIENT
  Age: 17828 Day
  Sex: Male
  Weight: 113.6 kg

DRUGS (4)
  1. SEROQUEL [Suspect]
     Indication: SCHIZOPHRENIA
     Route: 048
     Dates: start: 19990127
  2. RISPERDAL [Concomitant]
     Indication: SCHIZOPHRENIA
     Dates: start: 19980701, end: 19980914
  3. ZYPREXA [Concomitant]
     Indication: SCHIZOPHRENIA
     Dates: start: 19971212, end: 19980214
  4. NAVANE [Concomitant]
     Dates: start: 19961206, end: 19990118

REACTIONS (4)
  - BLOOD CHOLESTEROL INCREASED [None]
  - BLOOD TRIGLYCERIDES INCREASED [None]
  - DIABETES MELLITUS [None]
  - PANCREATITIS [None]
